FAERS Safety Report 12564052 (Version 1)
Quarter: 2016Q3

REPORT INFORMATION
  Report Type: Spontaneous
  Country: US (occurrence: US)
  Receive Date: 20160718
  Receipt Date: 20160718
  Transmission Date: 20161109
  Serious: No
  Sender: FDA-Public Use
  Company Number: US-AMGEN-USASP2016090434

PATIENT
  Age: 60 Year
  Sex: Female

DRUGS (1)
  1. ENBREL [Suspect]
     Active Substance: ETANERCEPT
     Indication: RHEUMATOID ARTHRITIS
     Dosage: 50 MG, QWK
     Route: 065
     Dates: start: 201605

REACTIONS (6)
  - Dry skin [Unknown]
  - Skin haemorrhage [Unknown]
  - Injection site inflammation [Unknown]
  - Injection site discolouration [Unknown]
  - Injection site vesicles [Unknown]
  - Contusion [Unknown]

NARRATIVE: CASE EVENT DATE: 2016
